FAERS Safety Report 11798554 (Version 2)
Quarter: 2016Q2

REPORT INFORMATION
  Report Type: Report from Study
  Country: US (occurrence: US)
  Receive Date: 20151203
  Receipt Date: 20160407
  Transmission Date: 20160815
  Serious: No
  Sender: FDA-Public Use
  Company Number: US-AMGEN-USASP2015127676

PATIENT
  Age: 75 Year
  Sex: Female

DRUGS (4)
  1. ENBREL [Suspect]
     Active Substance: ETANERCEPT
     Dosage: UNK UNK, EVERY 12 TO 14 DAYS
     Route: 065
  2. ENBREL [Suspect]
     Active Substance: ETANERCEPT
     Dosage: UNK UNK, TWICE MONTH
     Route: 065
  3. ENBREL [Suspect]
     Active Substance: ETANERCEPT
     Dosage: UNK UNK, QMO
     Route: 065
  4. ENBREL [Suspect]
     Active Substance: ETANERCEPT
     Indication: RHEUMATOID ARTHRITIS
     Dosage: 50 MG, QWK
     Route: 065
     Dates: start: 2005

REACTIONS (10)
  - Swelling [Unknown]
  - Rash pruritic [Unknown]
  - Rash erythematous [Unknown]
  - Rash [Unknown]
  - Pruritus [Unknown]
  - Device issue [Unknown]
  - Blood pressure increased [Unknown]
  - Arthritis [Unknown]
  - Intentional product misuse [Unknown]
  - Gait disturbance [Unknown]

NARRATIVE: CASE EVENT DATE: 201508
